FAERS Safety Report 11093764 (Version 1)
Quarter: 2015Q2

REPORT INFORMATION
  Report Type: Spontaneous
  Country: US (occurrence: US)
  Receive Date: 20150506
  Receipt Date: 20150506
  Transmission Date: 20150821
  Serious: Yes (Other)
  Sender: FDA-Public Use
  Company Number: US-PFIZER INC-2015150956

PATIENT
  Age: 68 Year
  Sex: Male

DRUGS (3)
  1. PREDNISONE. [Suspect]
     Active Substance: PREDNISONE
     Indication: COLITIS
     Dosage: 1 MG/KG/DAY TAPERED OVER ONE MONTH
     Dates: start: 201205
  2. INFLIXIMAB [Suspect]
     Active Substance: INFLIXIMAB
     Indication: COLITIS
     Dosage: TWO DOSES AT 5 MG/KG, SEPARATED BY 9 DAYS
     Dates: start: 201205
  3. METHYLPREDNISOLONE. [Suspect]
     Active Substance: METHYLPREDNISOLONE
     Indication: COLITIS
     Dosage: 2 MG/KG/DAY FOR ONE DAY
     Dates: start: 201205

REACTIONS (1)
  - Bronchopulmonary aspergillosis [Recovering/Resolving]

NARRATIVE: CASE EVENT DATE: 20120621
